FAERS Safety Report 15524911 (Version 1)
Quarter: 2018Q4

REPORT INFORMATION
  Report Type: Spontaneous
  Country: FR (occurrence: FR)
  Receive Date: 20181018
  Receipt Date: 20181018
  Transmission Date: 20190205
  Serious: Yes (Other)
  Sender: FDA-Public Use
  Company Number: FR-TEVA-2018-FR-965413

PATIENT
  Age: 55 Year
  Sex: Female
  Weight: 82 kg

DRUGS (2)
  1. STILNOX 10 MG, COMPRIM? PELLICUL? S?CABLE [Suspect]
     Active Substance: ZOLPIDEM TARTRATE
     Indication: POISONING DELIBERATE
     Dosage: 60 DOSAGE FORMS DAILY;
     Route: 048
     Dates: start: 20180402, end: 20180402
  2. AMOXICILLINE [Suspect]
     Active Substance: AMOXICILLIN
     Indication: POISONING DELIBERATE
     Route: 048
     Dates: start: 20180402, end: 20180402

REACTIONS (3)
  - Psychomotor hyperactivity [Recovered/Resolved]
  - Suicide attempt [Recovered/Resolved]
  - Somnolence [Recovered/Resolved]

NARRATIVE: CASE EVENT DATE: 20180402
